FAERS Safety Report 5007856-2 (Version None)
Quarter: 2006Q2

REPORT INFORMATION
  Report Type: 
  Country: None (occurrence: None)
  Receive Date: 20060522
  Receipt Date: 20060512
  Transmission Date: 20061013
  Serious: Yes (Disabling)
  Sender: FDA-Public Use
  Company Number: 2006UW09464

PATIENT
  Age: 54 Year
  Sex: Male
  Weight: 61.2 kg

DRUGS (3)
  1. TOPROL-XL [Suspect]
     Indication: BLOOD PRESSURE INCREASED
     Dosage: 150 MG M-W-F 250 MG T-TH-S-S
     Route: 048
  2. CLONIDINE PATCH TTS-2 [Concomitant]
  3. MINOXIDIL [Concomitant]

REACTIONS (4)
  - ABASIA [None]
  - HAEMODIALYSIS [None]
  - MUSCLE DISORDER [None]
  - NERVOUS SYSTEM DISORDER [None]
